FAERS Safety Report 18705166 (Version 1)
Quarter: 2021Q1

REPORT INFORMATION
  Report Type: Report from Study
  Country: None (occurrence: IL)
  Receive Date: 20210106
  Receipt Date: 20210106
  Transmission Date: 20210419
  Serious: Yes (Hospitalization, Other)
  Sender: FDA-Public Use
  Company Number: IL-ABBVIE-20K-082-3514364-00

PATIENT
  Sex: Female

DRUGS (1)
  1. HUMIRA [Suspect]
     Active Substance: ADALIMUMAB
     Indication: HIDRADENITIS
     Route: 058
     Dates: start: 20200525

REACTIONS (3)
  - Hidradenitis [Unknown]
  - Therapeutic product effect incomplete [Unknown]
  - Post procedural complication [Unknown]

NARRATIVE: CASE EVENT DATE: 2020
